FAERS Safety Report 4334633-8 (Version None)
Quarter: 2004Q2

REPORT INFORMATION
  Report Type: 
  Country: None (occurrence: None)
  Receive Date: 20040408
  Receipt Date: 20030108
  Transmission Date: 20050107
  Serious: Yes (Hospitalization)
  Sender: FDA-Public Use
  Company Number: PHBS2003JP00627

PATIENT
  Age: 40 Year
  Sex: Male

DRUGS (2)
  1. VOLTAREN [Suspect]
     Indication: PYREXIA
     Dosage: 25 MG/DAY
     Route: 048
     Dates: start: 20010612
  2. LITHIUM CARBONATE [Suspect]
     Indication: DYSTONIA
     Dosage: 400 MG/DAY
     Dates: start: 20010501

REACTIONS (5)
  - DEPRESSED LEVEL OF CONSCIOUSNESS [None]
  - DRUG INTERACTION [None]
  - DRUG TOXICITY [None]
  - MOUTH BREATHING [None]
  - THERAPEUTIC AGENT TOXICITY [None]
